FAERS Safety Report 8009232 (Version 3)
Quarter: 2015Q1

REPORT INFORMATION
  Report Type: Spontaneous
  Country: GB (occurrence: GB)
  Receive Date: 20110624
  Receipt Date: 20150112
  Transmission Date: 20150721
  Serious: Yes (Death, Hospitalization)
  Sender: FDA-Public Use
  Company Number: PHFR2011GB03781

PATIENT
  Age: 64 Year
  Sex: Female

DRUGS (4)
  1. LITHIUM [Concomitant]
     Active Substance: LITHIUM CARBONATE
     Indication: PRODUCT USED FOR UNKNOWN INDICATION
     Dosage: 600 OT
     Route: 065
  2. ZOPICLONE [Concomitant]
     Active Substance: ZOPICLONE
     Indication: PRODUCT USED FOR UNKNOWN INDICATION
     Route: 065
  3. CLOZARIL [Suspect]
     Active Substance: CLOZAPINE
     Indication: SCHIZOPHRENIA
     Dosage: 500 OT
     Route: 048
     Dates: start: 20020815
  4. DIAZEPAM. [Concomitant]
     Active Substance: DIAZEPAM
     Indication: PRODUCT USED FOR UNKNOWN INDICATION
     Dosage: 15 OT
     Route: 065

REACTIONS (3)
  - Brain stem syndrome [Fatal]
  - Salivary hypersecretion [Recovered/Resolved]
  - Choking [Unknown]

NARRATIVE: CASE EVENT DATE: 20110526
